FAERS Safety Report 12179276 (Version 2)
Quarter: 2016Q1

REPORT INFORMATION
  Report Type: Spontaneous
  Country: US (occurrence: None)
  Receive Date: 20160315
  Receipt Date: 20160318
  Transmission Date: 20160526
  Serious: Yes (Life-Threatening, Hospitalization, Other)
  Sender: FDA-Public Use
  Company Number: US-MDT-ADR-2016-00441

PATIENT
  Age: 64 Year
  Sex: Female

DRUGS (2)
  1. COMPOUNDED BACLOFEN INTRATHECAL 300 MCG/ML [Suspect]
     Active Substance: BACLOFEN
     Indication: PAIN
     Dosage: 130.2 MCG/DAY
  2. DILAUDID [Suspect]
     Active Substance: HYDROMORPHONE HYDROCHLORIDE
     Dosage: 6.5 MG/DAY

REACTIONS (11)
  - Overdose [None]
  - Dyspnoea [None]
  - Hypertension [None]
  - Gastrointestinal disorder [None]
  - Unresponsive to stimuli [None]
  - Nausea [None]
  - Diarrhoea [None]
  - Drug withdrawal syndrome [None]
  - Vomiting [None]
  - Hypotension [None]
  - Headache [None]
